FAERS Safety Report 18014242 (Version 1)
Quarter: 2020Q3

REPORT INFORMATION
  Report Type: Report from Study
  Country: GB (occurrence: GB)
  Receive Date: 20200713
  Receipt Date: 20200713
  Transmission Date: 20201103
  Serious: Yes (Other)
  Sender: FDA-Public Use
  Company Number: GB-JNJFOC-20200641371

PATIENT
  Sex: Female

DRUGS (8)
  1. INSULIN [Concomitant]
     Active Substance: INSULIN NOS
  2. MORPHINE [Concomitant]
     Active Substance: MORPHINE
  3. STELARA [Suspect]
     Active Substance: USTEKINUMAB
     Indication: PSORIATIC ARTHROPATHY
     Route: 058
     Dates: start: 20180910
  4. METHOTREXATE. [Concomitant]
     Active Substance: METHOTREXATE
  5. METFORMIN [Concomitant]
     Active Substance: METFORMIN HYDROCHLORIDE
  6. STELARA [Suspect]
     Active Substance: USTEKINUMAB
  7. FOLIC ACID. [Concomitant]
     Active Substance: FOLIC ACID
  8. PREGABALIN. [Concomitant]
     Active Substance: PREGABALIN

REACTIONS (1)
  - COVID-19 [Recovered/Resolved]

NARRATIVE: CASE EVENT DATE: 202003
